FAERS Safety Report 7780522-6 (Version None)
Quarter: 2011Q3

REPORT INFORMATION
  Report Type: 
  Country: None (occurrence: None)
  Receive Date: 20110923
  Receipt Date: 20110915
  Transmission Date: 20111222
  Serious: Yes (Hospitalization)
  Sender: FDA-Public Use
  Company Number: DAV-AE-ACY-11-10

PATIENT
  Age: 65 Year
  Sex: Male

DRUGS (1)
  1. ACYCLOVIR [Suspect]
     Indication: HERPES ZOSTER
     Dosage: 500MG. ORALLY 5X/DAY

REACTIONS (14)
  - CONFUSIONAL STATE [None]
  - OXYGEN SATURATION DECREASED [None]
  - MEMORY IMPAIRMENT [None]
  - BALANCE DISORDER [None]
  - FATIGUE [None]
  - DYSSTASIA [None]
  - TOXICITY TO VARIOUS AGENTS [None]
  - NYSTAGMUS [None]
  - ATAXIA [None]
  - MENTAL STATUS CHANGES [None]
  - DYSARTHRIA [None]
  - DIALYSIS [None]
  - BLOOD PRESSURE INCREASED [None]
  - ERYTHEMA [None]
